FAERS Safety Report 19831559 (Version 1)
Quarter: 2021Q3

REPORT INFORMATION
  Report Type: Spontaneous
  Country: US (occurrence: US)
  Receive Date: 20210914
  Receipt Date: 20210914
  Transmission Date: 20211014
  Serious: No
  Sender: FDA-Public Use
  Company Number: None

PATIENT
  Age: 64 Year
  Sex: Male
  Weight: 77.6 kg

DRUGS (1)
  1. RADIUM ?223 DICHLORIDE (BAY 88?8223) [Suspect]
     Active Substance: RADIUM RA-223 DICHLORIDE
     Dates: end: 20210812

REACTIONS (3)
  - Haemoglobin decreased [None]
  - Decreased appetite [None]
  - Weight decreased [None]

NARRATIVE: CASE EVENT DATE: 20210902
